FAERS Safety Report 6466396-4 (Version None)
Quarter: 2009Q4

REPORT INFORMATION
  Report Type: 
  Country: None (occurrence: None)
  Receive Date: 20091202
  Receipt Date: 20091117
  Transmission Date: 20100525
  Serious: Yes (Hospitalization)
  Sender: FDA-Public Use
  Company Number: PHEH2009US15039

PATIENT
  Sex: Male

DRUGS (1)
  1. DIOVAN [Suspect]
     Indication: HYPERTENSION
     Dosage: 80 MG, QHS
     Dates: start: 20071001

REACTIONS (3)
  - FALL [None]
  - HYPOCALCAEMIA [None]
  - ROAD TRAFFIC ACCIDENT [None]
